FAERS Safety Report 20474794 (Version 1)
Quarter: 2022Q1

REPORT INFORMATION
  Report Type: Spontaneous
  Country: TR (occurrence: TR)
  Receive Date: 20220215
  Receipt Date: 20220215
  Transmission Date: 20220423
  Serious: Yes (Other)
  Sender: FDA-Public Use
  Company Number: TR-MACLEODS PHARMACEUTICALS US LTD-MAC2022034354

PATIENT

DRUGS (4)
  1. VENLAFAXINE [Suspect]
     Active Substance: VENLAFAXINE HYDROCHLORIDE
     Indication: Major depression
     Dosage: 75 MILLIGRAM, QD
     Route: 065
     Dates: start: 201508, end: 2015
  2. VENLAFAXINE [Suspect]
     Active Substance: VENLAFAXINE HYDROCHLORIDE
     Indication: Seasonal affective disorder
  3. AGOMELATINE [Suspect]
     Active Substance: AGOMELATINE
     Indication: Major depression
     Dosage: 25 MILLIGRAM, QD
     Route: 065
     Dates: start: 201508, end: 2015
  4. AGOMELATINE [Suspect]
     Active Substance: AGOMELATINE
     Indication: Seasonal affective disorder

REACTIONS (2)
  - Depression [Recovering/Resolving]
  - Mania [Recovering/Resolving]

NARRATIVE: CASE EVENT DATE: 20150101
